FAERS Safety Report 9928823 (Version 1)
Quarter: 2014Q1

REPORT INFORMATION
  Report Type: Spontaneous
  Country: FR (occurrence: FR)
  Receive Date: 20140227
  Receipt Date: 20140227
  Transmission Date: 20141002
  Serious: Yes (Hospitalization)
  Sender: FDA-Public Use
  Company Number: PHHY2014FR021013

PATIENT
  Age: 48 Year
  Sex: Male

DRUGS (4)
  1. CLOMIPRAMINE SANDOZ [Suspect]
     Indication: PRODUCT USED FOR UNKNOWN INDICATION
     Dosage: 25 G, DU
     Route: 048
     Dates: start: 20130607, end: 20130612
  2. CLOMIPRAMINE SANDOZ [Suspect]
     Dosage: 50 MG, DU
     Route: 048
     Dates: start: 20130610
  3. NOCTAMIDE [Concomitant]
     Indication: PRODUCT USED FOR UNKNOWN INDICATION
     Route: 065
     Dates: start: 20130603
  4. TRANXENE [Concomitant]
     Indication: PRODUCT USED FOR UNKNOWN INDICATION
     Route: 065
     Dates: start: 20130603

REACTIONS (1)
  - Hyponatraemia [Recovered/Resolved]
